FAERS Safety Report 15534792 (Version 1)
Quarter: 2018Q4

REPORT INFORMATION
  Report Type: Spontaneous
  Country: FR (occurrence: FR)
  Receive Date: 20181022
  Receipt Date: 20181022
  Transmission Date: 20190205
  Serious: Yes (Life-Threatening)
  Sender: FDA-Public Use
  Company Number: FR-TEVA-2018-FR-966697

PATIENT
  Age: 43 Year
  Sex: Male

DRUGS (4)
  1. CHLORHYDRATE DE TRAMADOL [Suspect]
     Active Substance: TRAMADOL HYDROCHLORIDE
     Indication: PAIN
     Dosage: 3000 MILLIGRAM DAILY;
     Route: 048
     Dates: start: 201805
  2. CHLORHYDRATE DE TRAMADOL [Suspect]
     Active Substance: TRAMADOL HYDROCHLORIDE
     Route: 048
     Dates: start: 20180620, end: 20180620
  3. BACLOFENE [Suspect]
     Active Substance: BACLOFEN
     Indication: ALCOHOL USE DISORDER
     Route: 048
  4. BACLOFENE [Suspect]
     Active Substance: BACLOFEN
     Dosage: 6 DOSAGE FORMS DAILY;
     Route: 048
     Dates: start: 20180620, end: 20180620

REACTIONS (2)
  - Toxicity to various agents [Recovered/Resolved]
  - Drug abuse [Recovering/Resolving]

NARRATIVE: CASE EVENT DATE: 20180620
